FAERS Safety Report 15580632 (Version 2)
Quarter: 2018Q4

REPORT INFORMATION
  Report Type: Report from Study
  Country: CA (occurrence: CA)
  Receive Date: 20181102
  Receipt Date: 20181127
  Transmission Date: 20190205
  Serious: Yes (Death)
  Sender: FDA-Public Use
  Company Number: CA-TAIHO ONCOLOGY  INC-EU-2018-01906

PATIENT
  Age: 58 Year
  Sex: Male
  Weight: 62 kg

DRUGS (2)
  1. LONSURF [Suspect]
     Active Substance: TIPIRACIL HYDROCHLORIDE\TRIFLURIDINE
     Indication: COLORECTAL CANCER METASTATIC
     Dosage: CYCLE 1 STOPPED AFTER THREE DOSES
     Route: 048
     Dates: start: 20181005, end: 201810
  2. HYDROMORPHONE [Concomitant]
     Active Substance: HYDROMORPHONE
     Dosage: NI

REACTIONS (3)
  - Fatigue [Unknown]
  - Ascites [Unknown]
  - Disease progression [Fatal]

NARRATIVE: CASE EVENT DATE: 2018
